FAERS Safety Report 5342141-0 (Version None)
Quarter: 2007Q2

REPORT INFORMATION
  Report Type: 
  Country: None (occurrence: None)
  Receive Date: 20070601
  Receipt Date: 20070530
  Transmission Date: 20071010
  Serious: Yes (Disabling)
  Sender: FDA-Public Use
  Company Number: US-SOLVAY-00207001196

PATIENT
  Age: 27 Year
  Sex: Female
  Weight: 53 kg

DRUGS (3)
  1. MARINOL [Suspect]
     Indication: ILL-DEFINED DISORDER
     Dosage: DAILY DOSE: 30 MILLIGRAM(S)
     Route: 048
  2. MARINOL [Suspect]
     Dosage: DAILY DOSE: 10 MG AS NEEDED
     Route: 048
  3. MARIJUANA [Suspect]
     Indication: PORPHYRIA ACUTE
     Dosage: DAILY DOSE: AS NEEDED
     Route: 048
     Dates: start: 20010101

REACTIONS (2)
  - COLOUR BLINDNESS [None]
  - VISUAL FIELD DEFECT [None]
